FAERS Safety Report 9233408 (Version 1)
Quarter: 2013Q2

REPORT INFORMATION
  Report Type: Spontaneous
  Country: US (occurrence: US)
  Receive Date: 20130416
  Receipt Date: 20130416
  Transmission Date: 20140414
  Serious: No
  Sender: FDA-Public Use
  Company Number: US-BANPHARM-20131017

PATIENT
  Sex: 0

DRUGS (1)
  1. ALEVE LIQUID GELS 220MG [Suspect]
     Route: 048
     Dates: start: 20120524

REACTIONS (3)
  - Foreign body [Recovered/Resolved]
  - Throat irritation [Not Recovered/Not Resolved]
  - Capsule physical issue [Not Recovered/Not Resolved]
